FAERS Safety Report 20052770 (Version 1)
Quarter: 2021Q4

REPORT INFORMATION
  Report Type: Spontaneous
  Country: US (occurrence: None)
  Receive Date: 20211110
  Receipt Date: 20211110
  Transmission Date: 20220303
  Serious: Yes (Hospitalization, Other)
  Sender: FDA-Public Use
  Company Number: US-MLMSERVICE-20211025-3182672-1

PATIENT
  Age: 73 Year
  Sex: Male

DRUGS (2)
  1. VITAMIN D [Suspect]
     Active Substance: VITAMIN D NOS
     Indication: COVID-19 prophylaxis
     Route: 048
  2. ASCORBIC ACID [Suspect]
     Active Substance: ASCORBIC ACID
     Indication: COVID-19 prophylaxis
     Route: 048

REACTIONS (3)
  - Acute kidney injury [Not Recovered/Not Resolved]
  - Tubulointerstitial nephritis [Not Recovered/Not Resolved]
  - Crystal nephropathy [Not Recovered/Not Resolved]
